FAERS Safety Report 25134976 (Version 1)
Quarter: 2025Q1

REPORT INFORMATION
  Report Type: Spontaneous
  Country: US (occurrence: None)
  Receive Date: 20250327
  Receipt Date: 20250327
  Transmission Date: 20250409
  Serious: No
  Sender: FDA-CTU
  Company Number: None

PATIENT
  Age: 56 Year
  Sex: Female

DRUGS (5)
  1. EMGALITY [Suspect]
     Active Substance: GALCANEZUMAB-GNLM
     Indication: Migraine with aura
     Route: 058
     Dates: start: 20250108, end: 20250327
  2. MEDROXYPROGESTERONE [Concomitant]
     Active Substance: MEDROXYPROGESTERONE
     Dates: start: 20241010
  3. ESTRADIOL [Concomitant]
     Active Substance: ESTRADIOL
     Dates: start: 20241010
  4. UBRELVY [Concomitant]
     Active Substance: UBROGEPANT
     Dates: start: 20241212
  5. TESTOSTERONE [Concomitant]
     Active Substance: TESTOSTERONE
     Dates: start: 20241030

REACTIONS (6)
  - Drug intolerance [None]
  - Adverse drug reaction [None]
  - Influenza like illness [None]
  - Abdominal pain [None]
  - Alopecia [None]
  - Weight increased [None]

NARRATIVE: CASE EVENT DATE: 20250327
